FAERS Safety Report 16239013 (Version 2)
Quarter: 2019Q2

REPORT INFORMATION
  Report Type: Report from Study
  Country: US (occurrence: US)
  Receive Date: 20190425
  Receipt Date: 20190429
  Transmission Date: 20190711
  Serious: No
  Sender: FDA-Public Use
  Company Number: US-SA-2019SA111582

PATIENT
  Age: 77 Year
  Sex: Female

DRUGS (2)
  1. ALIROCUMAB [Suspect]
     Active Substance: ALIROCUMAB
     Indication: LIPIDS
     Dosage: 75 MG, QOW
     Route: 058
     Dates: start: 20190417
  2. ALIROCUMAB [Suspect]
     Active Substance: ALIROCUMAB
     Indication: BLOOD CHOLESTEROL

REACTIONS (3)
  - Musculoskeletal stiffness [Unknown]
  - Nocturia [Unknown]
  - Neck pain [Unknown]

NARRATIVE: CASE EVENT DATE: 20190417
